FAERS Safety Report 11171422 (Version 1)
Quarter: 2015Q2

REPORT INFORMATION
  Report Type: Spontaneous
  Country: US (occurrence: None)
  Receive Date: 20150515
  Receipt Date: 20150515
  Transmission Date: 20150821
  Serious: Yes (Other)
  Sender: FDA-Public Use
  Company Number: 108612

PATIENT
  Age: 53 Year
  Sex: Female
  Weight: 109 kg

DRUGS (10)
  1. RITALIN (METHYLPHENIDATE HYDROCHLORIDE) [Concomitant]
     Active Substance: METHYLPHENIDATE HYDROCHLORIDE
  2. FOLIC ACID. [Concomitant]
     Active Substance: FOLIC ACID
  3. CIMZIA [Suspect]
     Active Substance: CERTOLIZUMAB PEGOL
     Indication: RHEUMATOID ARTHRITIS
     Dosage: BEEN TAKING FOR 2 YEARS-400 MG 2 VIALS; SELF INJECTION, SUBCUTANEOUS
     Route: 058
     Dates: start: 201102, end: 201309
  4. LEFLUNOMIDE. [Concomitant]
     Active Substance: LEFLUNOMIDE
  5. NARCO (HYDROCODONE BITARTRATE; PARACETAMOL) [Concomitant]
  6. POTASSIUM [Concomitant]
     Active Substance: POTASSIUM
  7. CIPRO [Concomitant]
     Active Substance: CIPROFLOXACIN HYDROCHLORIDE
  8. AMLODIPINE [Concomitant]
     Active Substance: AMLODIPINE BESYLATE
  9. LOSARTEN HCTZ (LOSARTAN) [Concomitant]
  10. SOMA [Concomitant]
     Active Substance: CARISOPRODOL

REACTIONS (1)
  - Urinary tract infection [None]

NARRATIVE: CASE EVENT DATE: 201302
